FAERS Safety Report 9478453 (Version 1)
Quarter: 2013Q3

REPORT INFORMATION
  Report Type: Spontaneous
  Country: US (occurrence: None)
  Receive Date: 20130822
  Receipt Date: 20130822
  Transmission Date: 20140515
  Serious: Yes (Hospitalization)
  Sender: FDA-Public Use
  Company Number: ACO_28217_2006

PATIENT
  Age: 60 Year
  Sex: Female
  Weight: 100 kg

DRUGS (8)
  1. FAMPRIDINE [Suspect]
     Indication: MULTIPLE SCLEROSIS
     Dates: start: 20060106, end: 20060107
  2. GEODON [Suspect]
     Indication: PRODUCT USED FOR UNKNOWN INDICATION
  3. ATORVASTATIN (ATORVASTATIN) [Concomitant]
  4. DONEPEZIL HYDROCHLORIDE) DONZEPIL HYDRCHLORIDE) [Concomitant]
  5. ESCITALOPRAM OXALATE [Concomitant]
  6. BUPROPION HYDROCHLORIDE) (BUPROPION HYDROCHLORIDE) [Concomitant]
  7. TYLENOL ARTHRITIS (PARACETAMOL) [Concomitant]
  8. ZALEPLON (ZALEPLON) [Concomitant]

REACTIONS (2)
  - Anxiety [None]
  - Insomnia [None]
